FAERS Safety Report 11417664 (Version 4)
Quarter: 2017Q1

REPORT INFORMATION
  Report Type: Report from Study
  Country: AU (occurrence: AU)
  Receive Date: 20150825
  Receipt Date: 20170330
  Transmission Date: 20170428
  Serious: Yes (Hospitalization)
  Sender: FDA-Public Use
  Company Number: PHHY2014AU136380

PATIENT
  Age: 58 Year
  Sex: Female

DRUGS (19)
  1. WARFARIN [Concomitant]
     Active Substance: WARFARIN
     Indication: PULMONARY EMBOLISM
  2. ATENOLOL. [Concomitant]
     Active Substance: ATENOLOL
     Indication: HYPERTENSION
     Dosage: 50 MG, BID
     Route: 065
  3. EPREX [Concomitant]
     Active Substance: ERYTHROPOIETIN
     Indication: ANAEMIA OF CHRONIC DISEASE
     Dosage: 40000 U/ML, QW
     Route: 042
  4. CHOLECALCIFEROL [Concomitant]
     Active Substance: CHOLECALCIFEROL
     Indication: BLOOD PHOSPHORUS ABNORMAL
     Dosage: 1.5 G, TID
     Route: 065
  5. SODIUM THIOSULPHATE [Concomitant]
     Active Substance: SODIUM THIOSULFATE
     Indication: VASCULAR CALCIFICATION
     Dosage: 25 G, UNK
     Route: 065
  6. ALLOPURINOL. [Concomitant]
     Active Substance: ALLOPURINOL
     Indication: GOUT
     Dosage: 100 MG, UNK
     Route: 065
  7. DOCUSATE [Concomitant]
     Active Substance: DOCUSATE
     Indication: CONSTIPATION
     Dosage: 50 MG, PRN
     Route: 065
  8. FRUSEMIDE [Concomitant]
     Active Substance: FUROSEMIDE
     Indication: FLUID RETENTION
     Dosage: 20 MG, QD
     Route: 065
  9. AUGMENTIN DUO [Suspect]
     Active Substance: AMOXICILLIN\CLAVULANATE POTASSIUM
     Indication: INFECTION
     Dosage: 1 DF, BID (500/125 MG)
     Route: 048
     Dates: start: 20150606, end: 20150618
  10. FISH OIL [Concomitant]
     Active Substance: FISH OIL
     Indication: PRODUCT USED FOR UNKNOWN INDICATION
     Dosage: 1 G, BID
     Route: 065
  11. ROSUVASTATIN. [Concomitant]
     Active Substance: ROSUVASTATIN
     Indication: BLOOD CHOLESTEROL INCREASED
     Dosage: 10 MG, QD
     Route: 065
  12. AMLODIPINE [Concomitant]
     Active Substance: AMLODIPINE BESYLATE
     Indication: HYPERTENSION
     Dosage: 5 MG, QD
     Route: 065
  13. AZATHIOPRINE. [Concomitant]
     Active Substance: AZATHIOPRINE
     Indication: SYSTEMIC LUPUS ERYTHEMATOSUS
     Dosage: 50 MG, QW
     Route: 065
  14. WARFARIN [Concomitant]
     Active Substance: WARFARIN
     Indication: DEEP VEIN THROMBOSIS
     Dosage: UNK
     Route: 065
  15. PANTOPRAZOLE [Concomitant]
     Active Substance: PANTOPRAZOLE SODIUM
     Indication: GASTROOESOPHAGEAL REFLUX DISEASE
     Dosage: 40 MG, QD
     Route: 065
  16. MYFORTIC [Suspect]
     Active Substance: MYCOPHENOLATE SODIUM
     Indication: SYSTEMIC LUPUS ERYTHEMATOSUS
     Dosage: 720 MG, FOR 4/7
     Route: 065
     Dates: start: 20140128, end: 20140131
  17. MYFORTIC [Suspect]
     Active Substance: MYCOPHENOLATE SODIUM
     Dosage: 1440 MG, FOR 3/7
     Route: 065
     Dates: start: 20140201, end: 20140204
  18. CYCLOSPORIN [Concomitant]
     Active Substance: CYCLOSPORINE
     Indication: PRODUCT USED FOR UNKNOWN INDICATION
     Route: 065
  19. APO HYDROXYCHLOROQUINE [Concomitant]
     Indication: PRODUCT USED FOR UNKNOWN INDICATION
     Dosage: 200 MG, QD
     Route: 065
     Dates: start: 20140416

REACTIONS (25)
  - Fall [Recovering/Resolving]
  - Cellulitis [Recovering/Resolving]
  - Wound infection staphylococcal [Unknown]
  - Peripheral ischaemia [Recovering/Resolving]
  - Gangrene [Recovering/Resolving]
  - Pancytopenia [Recovering/Resolving]
  - Hypersensitivity [Unknown]
  - Nausea [Unknown]
  - Vomiting [Recovered/Resolved]
  - Sepsis [Recovering/Resolving]
  - Hypotension [Recovering/Resolving]
  - Necrosis [Recovering/Resolving]
  - Nausea [Recovered/Resolved]
  - Haematoma [Not Recovered/Not Resolved]
  - Localised infection [Recovering/Resolving]
  - Pyrexia [Recovering/Resolving]
  - Ischaemia [Recovered/Resolved with Sequelae]
  - Vomiting [Unknown]
  - Diarrhoea [Recovered/Resolved]
  - Squamous cell carcinoma [Recovering/Resolving]
  - Pain [Recovering/Resolving]
  - Heparin-induced thrombocytopenia [Recovering/Resolving]
  - Skin ulcer [Recovering/Resolving]
  - Chills [Recovering/Resolving]
  - Dehydration [Recovered/Resolved]

NARRATIVE: CASE EVENT DATE: 20140128
